FAERS Safety Report 7293013-6 (Version None)
Quarter: 2011Q1

REPORT INFORMATION
  Report Type: 
  Country: None (occurrence: None)
  Receive Date: 20110215
  Receipt Date: 20110203
  Transmission Date: 20110831
  Serious: Yes (Disabling)
  Sender: FDA-Public Use
  Company Number: GB-SANOFI-AVENTIS-2011SA007304

PATIENT
  Age: 76 Year
  Sex: Female
  Weight: 53.97 kg

DRUGS (16)
  1. MULTAQ [Suspect]
     Route: 048
     Dates: start: 20110124, end: 20110131
  2. ASPIRIN [Concomitant]
  3. NITROGLYCERIN [Concomitant]
  4. HYDROXOCOBALAMIN [Concomitant]
  5. VALSARTAN [Concomitant]
  6. ATORVASTATIN [Concomitant]
  7. FERROUS FUMARATE [Concomitant]
  8. FUROSEMIDE [Concomitant]
  9. ISOSORBIDE MONONITRATE [Concomitant]
  10. LIOTHYRONINE SODIUM [Concomitant]
  11. BISOPROLOL FUMARATE [Concomitant]
  12. LANSOPRAZOLE [Concomitant]
  13. EPLERENONE [Concomitant]
  14. ACETAMINOPHEN W/ CODEINE [Concomitant]
  15. AMIODARONE HYDROCHLORIDE [Concomitant]
     Route: 065
     Dates: end: 20110123
  16. FOLIC ACID [Concomitant]

REACTIONS (5)
  - UNDERDOSE [None]
  - ABDOMINAL PAIN UPPER [None]
  - MUSCULAR WEAKNESS [None]
  - IMPAIRED DRIVING ABILITY [None]
  - DIARRHOEA [None]
